FAERS Safety Report 17032505 (Version 7)
Quarter: 2020Q3

REPORT INFORMATION
  Report Type: Report from Study
  Country: IT (occurrence: IT)
  Receive Date: 20191114
  Receipt Date: 20200716
  Transmission Date: 20201102
  Serious: Yes (Hospitalization, Other)
  Sender: FDA-Public Use
  Company Number: NVSC2019IT032647

PATIENT
  Age: 46 Year
  Sex: Female
  Weight: 96 kg

DRUGS (7)
  1. ENTEROGERMINA [Concomitant]
     Active Substance: BACILLUS SUBTILIS
     Indication: PRODUCT USED FOR UNKNOWN INDICATION
     Dosage: 1 DF (VIAL), TID (FOR 15 DAYS)
     Route: 065
     Dates: start: 20190902
  2. GILENYA [Suspect]
     Active Substance: FINGOLIMOD HYDROCHLORIDE
     Indication: MULTIPLE SCLEROSIS
     Dosage: 0.5 MG, QD
     Route: 048
     Dates: start: 20130819, end: 20190902
  3. GASTROLOC [Concomitant]
     Indication: PRODUCT USED FOR UNKNOWN INDICATION
     Dosage: 40 MG, BID (FOR 3 DAYS)
     Route: 065
     Dates: start: 20190902, end: 20190905
  4. AXAGON [Concomitant]
     Active Substance: ESOMEPRAZOLE
     Indication: PRODUCT USED FOR UNKNOWN INDICATION
     Dosage: 40 OT
     Route: 065
     Dates: start: 20190905
  5. AUGMENTIN [Concomitant]
     Active Substance: AMOXICILLIN\CLAVULANATE POTASSIUM
     Indication: PRODUCT USED FOR UNKNOWN INDICATION
     Dosage: 1 G, TID (FOR 7 DAYS)
     Route: 065
     Dates: start: 20190902
  6. DELTACORTENE [Concomitant]
     Active Substance: PREDNISONE
     Indication: PRODUCT USED FOR UNKNOWN INDICATION
     Dosage: 25 MG, BID (FOR 3 DAYS)
     Route: 065
     Dates: start: 20190902
  7. DELTACORTENE [Concomitant]
     Active Substance: PREDNISONE
     Dosage: 25 MG, QD (FOR 6 DAYS)
     Route: 065
     Dates: end: 20190910

REACTIONS (7)
  - Oedema blister [Recovering/Resolving]
  - Polymerase chain reaction positive [Unknown]
  - Vitamin D deficiency [Not Recovered/Not Resolved]
  - Erythema [Unknown]
  - Pyrexia [Recovering/Resolving]
  - Lymphocyte count decreased [Unknown]
  - Blood fibrinogen increased [Unknown]

NARRATIVE: CASE EVENT DATE: 20190826
